FAERS Safety Report 12230666 (Version 2)
Quarter: 2020Q2

REPORT INFORMATION
  Report Type: Spontaneous
  Country: CA (occurrence: CA)
  Receive Date: 20160401
  Receipt Date: 20200612
  Transmission Date: 20200713
  Serious: Yes (Death, Other)
  Sender: FDA-Public Use
  Company Number: CA-BAXTER-2016BAX016268

PATIENT
  Age: 27 Year
  Sex: Female

DRUGS (19)
  1. FORANE [Suspect]
     Active Substance: ISOFLURANE
     Dosage: DOSAGE FORM: LIQUID INHALATION
     Route: 065
  2. CLOBAZAM. [Suspect]
     Active Substance: CLOBAZAM
     Indication: STATUS EPILEPTICUS
     Dosage: DOSAGE FORM: TABLETS
     Route: 065
  3. PENTOBARBITAL. [Suspect]
     Active Substance: PENTOBARBITAL
     Indication: STATUS EPILEPTICUS
     Route: 065
  4. KETAMINE HYDROCHLORIDE INJECTION USP [Suspect]
     Active Substance: KETAMINE HYDROCHLORIDE
     Indication: STATUS EPILEPTICUS
     Dosage: SOLUTION
     Route: 030
  5. KEPPRA [Suspect]
     Active Substance: LEVETIRACETAM
     Indication: STATUS EPILEPTICUS
     Dosage: DOSAGE FORM: TABLETS
     Route: 065
  6. MAGNESIUM SULFATE. [Suspect]
     Active Substance: MAGNESIUM SULFATE
     Indication: STATUS EPILEPTICUS
     Dosage: DOSAGE FORM: NOT SPECIFIED
     Route: 065
  7. DEXAMETHASONE. [Suspect]
     Active Substance: DEXAMETHASONE
     Indication: STATUS EPILEPTICUS
     Dosage: DOSAGE FORM: NOT SPECIFIED
     Route: 065
  8. MIDAZOLAM. [Suspect]
     Active Substance: MIDAZOLAM
     Indication: STATUS EPILEPTICUS
     Dosage: DOSAGE FORM: SOLUTION INTRAMUSCULAR
     Route: 030
  9. TOPIRAMATE. [Suspect]
     Active Substance: TOPIRAMATE
     Indication: STATUS EPILEPTICUS
     Dosage: DOSAGE FORM: NOT SPECIFIED
     Route: 065
  10. VALPROIC ACID. [Suspect]
     Active Substance: VALPROIC ACID
     Indication: STATUS EPILEPTICUS
     Dosage: DOSAGE FORM: NOT SPECIFIED
     Route: 065
  11. PROPOFOL. [Suspect]
     Active Substance: PROPOFOL
     Indication: OFF LABEL USE
  12. IMMUNE GLOBULIN INTRAVENOUS (HUMAN) [Suspect]
     Active Substance: HUMAN IMMUNOGLOBULIN G
     Indication: PRODUCT USED FOR UNKNOWN INDICATION
     Dosage: SOLUTION
     Route: 042
  13. IMMUNE SERUM GLOBULIN (HUMAN) [Suspect]
     Active Substance: HUMAN IMMUNOGLOBULIN G
     Indication: PRODUCT USED FOR UNKNOWN INDICATION
     Dosage: SOLUTION
     Route: 030
  14. VIMPAT [Suspect]
     Active Substance: LACOSAMIDE
     Indication: STATUS EPILEPTICUS
     Dosage: DOSAGE FORM: NOT SPECIFIED
     Route: 065
  15. FORANE [Suspect]
     Active Substance: ISOFLURANE
     Indication: STATUS EPILEPTICUS
     Dosage: DOSAGE FORM: INHALATION VAPOUR, LIQUID
     Route: 065
  16. FORANE [Suspect]
     Active Substance: ISOFLURANE
     Indication: OFF LABEL USE
     Dosage: DOSAGE FORM: INHALATION VAPOUR, LIQUID
     Route: 065
  17. MAGNESIUM-45 0.5-4.5 [Suspect]
     Active Substance: MAGNESIUM
     Indication: PRODUCT USED FOR UNKNOWN INDICATION
     Dosage: DOSAGE FORM: NOT SPECIFIED
     Route: 065
  18. PROPOFOL. [Suspect]
     Active Substance: PROPOFOL
     Indication: STATUS EPILEPTICUS
     Dosage: DOSAGE FORM: EMULSION
     Route: 065
  19. OXCARBAZEPINE. [Suspect]
     Active Substance: OXCARBAZEPINE
     Indication: STATUS EPILEPTICUS
     Dosage: DOSAGE FORM: NOT SPECIFIED
     Route: 065

REACTIONS (13)
  - Shock [Fatal]
  - Status epilepticus [Fatal]
  - Metabolic acidosis [Fatal]
  - Blood lactic acid increased [Fatal]
  - Blood gases abnormal [Fatal]
  - Drug ineffective for unapproved indication [Fatal]
  - Gene mutation [Fatal]
  - Electrocardiogram QT prolonged [Fatal]
  - Mitochondrial DNA mutation [Fatal]
  - Arrhythmia [Fatal]
  - Blood creatine phosphokinase increased [Fatal]
  - Off label use [Fatal]
  - Propofol infusion syndrome [Fatal]
